FAERS Safety Report 14196290 (Version 3)
Quarter: 2017Q4

REPORT INFORMATION
  Report Type: Spontaneous
  Country: BE (occurrence: BE)
  Receive Date: 20171116
  Receipt Date: 20171127
  Transmission Date: 20180321
  Serious: Yes (Hospitalization, Other)
  Sender: FDA-Public Use
  Company Number: BE-009507513-1711BEL005319

PATIENT
  Age: 81 Year
  Sex: Female
  Weight: 49 kg

DRUGS (5)
  1. KEYTRUDA [Suspect]
     Active Substance: PEMBROLIZUMAB
     Indication: MALIGNANT MELANOMA
     Dosage: 1 DF, UNK (1 DOSE/1 COURSE)
     Route: 042
     Dates: start: 20171023
  2. GINGER. [Concomitant]
     Active Substance: GINGER
     Dosage: 1 DF, 4/DAYS
     Route: 048
     Dates: start: 20171030, end: 20171110
  3. KEYTRUDA [Suspect]
     Active Substance: PEMBROLIZUMAB
     Dosage: 1 DF,1 DOSE/1 COURSE
     Route: 042
     Dates: start: 20171110
  4. MOTILIUM [Concomitant]
     Active Substance: DOMPERIDONE
     Dosage: 1 DF, TID
     Dates: start: 20170801
  5. PANTOSEC D [Concomitant]
     Dosage: 1 DF, QD
     Dates: start: 20170801

REACTIONS (1)
  - Neutropenia [Recovered/Resolved]

NARRATIVE: CASE EVENT DATE: 20171110
